FAERS Safety Report 8300661-0 (Version None)
Quarter: 2012Q2

REPORT INFORMATION
  Report Type: 
  Country: None (occurrence: None)
  Receive Date: 20120420
  Receipt Date: 20120410
  Transmission Date: 20120825
  Serious: Yes (Hospitalization)
  Sender: FDA-Public Use
  Company Number: PHHY2012KR004885

PATIENT
  Sex: Female
  Weight: 43 kg

DRUGS (1)
  1. EXJADE [Suspect]
     Indication: APLASTIC ANAEMIA
     Route: 048
     Dates: start: 20080613

REACTIONS (7)
  - CARDIAC DISORDER [None]
  - CHOLECYSTITIS [None]
  - VOMITING [None]
  - HAEMOLYTIC ANAEMIA [None]
  - WEIGHT DECREASED [None]
  - HAEMOGLOBIN DECREASED [None]
  - DYSPEPSIA [None]
